FAERS Safety Report 13021665 (Version 1)
Quarter: 2016Q4

REPORT INFORMATION
  Report Type: Spontaneous
  Country: US (occurrence: US)
  Receive Date: 20161213
  Receipt Date: 20161213
  Transmission Date: 20170207
  Serious: No
  Sender: FDA-Public Use
  Company Number: US-BEH-2016075915

PATIENT
  Age: 59 Year
  Sex: Female

DRUGS (1)
  1. HIZENTRA [Suspect]
     Active Substance: HUMAN IMMUNOGLOBULIN G
     Indication: RHEUMATOID ARTHRITIS
     Dosage: 20 G, QW
     Route: 058
     Dates: start: 20140116

REACTIONS (2)
  - Administration site extravasation [Unknown]
  - Administration site irritation [Unknown]

NARRATIVE: CASE EVENT DATE: 20161202
